FAERS Safety Report 7466228-1 (Version None)
Quarter: 2011Q2

REPORT INFORMATION
  Report Type: 
  Country: None (occurrence: None)
  Receive Date: 20110509
  Receipt Date: 20110425
  Transmission Date: 20111010
  Serious: Yes (Hospitalization)
  Sender: FDA-Public Use
  Company Number: TR-WATSON-2011-06060

PATIENT
  Age: 3 Year
  Sex: Male

DRUGS (1)
  1. ISONIAZID [Suspect]
     Indication: ANTIBIOTIC PROPHYLAXIS
     Dosage: UNK FOR 2 MONTHS

REACTIONS (5)
  - METABOLIC ACIDOSIS [None]
  - RHABDOMYOLYSIS [None]
  - COMA [None]
  - GRAND MAL CONVULSION [None]
  - POISONING [None]
